FAERS Safety Report 4858780-7 (Version None)
Quarter: 2005Q4

REPORT INFORMATION
  Report Type: 
  Country: None (occurrence: None)
  Receive Date: 20051219
  Receipt Date: 20051028
  Transmission Date: 20060501
  Serious: No
  Sender: FDA-Public Use
  Company Number: US-GLAXOSMITHKLINE-A0580067A

PATIENT
  Age: 82 Year
  Sex: Female

DRUGS (1)
  1. AMERICAN FARE NTS, 21MG STEP 1 [Suspect]
     Dates: start: 20051025, end: 20051026

REACTIONS (2)
  - PRURITUS GENERALISED [None]
  - THROAT IRRITATION [None]
